FAERS Safety Report 4359111-1 (Version None)
Quarter: 2004Q2

REPORT INFORMATION
  Report Type: 
  Country: None (occurrence: None)
  Receive Date: 20040512
  Receipt Date: 20040503
  Transmission Date: 20050107
  Serious: No
  Sender: FDA-Public Use
  Company Number: 2004CG00853

PATIENT
  Age: 24 Year
  Sex: Female

DRUGS (4)
  1. MERONEM [Suspect]
     Indication: PSEUDOMONAS INFECTION
     Dosage: 2 G TID IV
     Route: 042
     Dates: start: 20040429, end: 20040502
  2. MERONEM [Suspect]
     Indication: PSEUDOMONAS INFECTION
     Dosage: 1 G DAILY IV
     Route: 042
     Dates: start: 20040502, end: 20040502
  3. NEBCIN [Concomitant]
  4. CIPROFLOXACIN [Concomitant]

REACTIONS (4)
  - ENURESIS [None]
  - LOSS OF CONSCIOUSNESS [None]
  - MYOCLONUS [None]
  - NAUSEA [None]
